FAERS Safety Report 5840267-6 (Version None)
Quarter: 2008Q3

REPORT INFORMATION
  Report Type: 
  Country: None (occurrence: None)
  Receive Date: 20080807
  Receipt Date: 20080807
  Transmission Date: 20090109
  Serious: Yes (Other)
  Sender: FDA-Public Use
  Company Number: None

PATIENT
  Sex: Female
  Weight: 54.8852 kg

DRUGS (1)
  1. DEPAKOTE ER [Suspect]
     Indication: MIGRAINE
     Dosage: 500MG TWICE A DAY PO
     Route: 048
     Dates: start: 20071001, end: 20080401

REACTIONS (2)
  - ALOPECIA [None]
  - ALOPECIA AREATA [None]
